FAERS Safety Report 22137825 (Version 1)
Quarter: 2023Q1

REPORT INFORMATION
  Report Type: Report from Study
  Country: US (occurrence: US)
  Receive Date: 20230325
  Receipt Date: 20230325
  Transmission Date: 20230417
  Serious: Yes (Other)
  Sender: FDA-Public Use
  Company Number: US-ABBVIE-4702227

PATIENT
  Age: 57 Year
  Sex: Female

DRUGS (1)
  1. RINVOQ [Suspect]
     Active Substance: UPADACITINIB
     Indication: Rheumatoid arthritis
     Route: 048
     Dates: start: 20200309

REACTIONS (9)
  - Femur fracture [Unknown]
  - Lower limb fracture [Recovering/Resolving]
  - Fall [Recovering/Resolving]
  - Clavicle fracture [Recovering/Resolving]
  - Stress [Unknown]
  - Peripheral swelling [Unknown]
  - Pain in extremity [Unknown]
  - Tibia fracture [Unknown]
  - Drug ineffective [Unknown]

NARRATIVE: CASE EVENT DATE: 20230115
